FAERS Safety Report 19308794 (Version 2)
Quarter: 2021Q2

REPORT INFORMATION
  Report Type: Spontaneous
  Country: AU (occurrence: AU)
  Receive Date: 20210526
  Receipt Date: 20210609
  Transmission Date: 20210717
  Serious: Yes (Other)
  Sender: FDA-Public Use
  Company Number: NVSC2021AU108933

PATIENT
  Age: 83 Year
  Sex: Female

DRUGS (6)
  1. BEOVU [Suspect]
     Active Substance: BROLUCIZUMAB-DBLL
     Dosage: 0.05 ML, QW
     Route: 031
  2. BEOVU [Suspect]
     Active Substance: BROLUCIZUMAB-DBLL
     Indication: CHOROIDAL NEOVASCULARISATION
     Dosage: 0.05 ML, QW (RIGHT EYE) (4?5 WEEKLY)
     Route: 031
     Dates: start: 20201118
  3. BEOVU [Suspect]
     Active Substance: BROLUCIZUMAB-DBLL
     Dosage: 0.05 ML, QW
     Route: 031
     Dates: end: 20210427
  4. BEOVU [Suspect]
     Active Substance: BROLUCIZUMAB-DBLL
     Dosage: 0.05 ML, QW
     Route: 031
  5. FISH OIL [Concomitant]
     Active Substance: FISH OIL
     Indication: PRODUCT USED FOR UNKNOWN INDICATION
     Dosage: UNK
     Route: 065
  6. BEOVU [Suspect]
     Active Substance: BROLUCIZUMAB-DBLL
     Dosage: 0.05 ML, QW
     Route: 031

REACTIONS (6)
  - Arteriosclerotic retinopathy [Not Recovered/Not Resolved]
  - Retinal exudates [Unknown]
  - Vision blurred [Unknown]
  - Visual acuity reduced [Unknown]
  - Product use in unapproved indication [Unknown]
  - Arteritis [Unknown]

NARRATIVE: CASE EVENT DATE: 20210427
